FAERS Safety Report 7231302-1 (Version None)
Quarter: 2011Q1

REPORT INFORMATION
  Report Type: 
  Country: None (occurrence: None)
  Receive Date: 20110118
  Receipt Date: 20110112
  Transmission Date: 20110831
  Serious: No
  Sender: FDA-Public Use
  Company Number: US-PFIZER INC-2011008438

PATIENT
  Sex: Female
  Weight: 113.4 kg

DRUGS (4)
  1. PAXIL [Suspect]
     Indication: ANXIETY
  2. EFFEXOR XR [Suspect]
     Indication: DEPRESSION
     Dosage: 150 MG, 2X/DAY
     Route: 048
     Dates: start: 20000101
  3. EFFEXOR XR [Suspect]
     Indication: ANXIETY
  4. PAXIL [Suspect]
     Indication: DEPRESSION
     Dosage: UNK

REACTIONS (7)
  - DRUG INEFFECTIVE [None]
  - MUSCLE SPASMS [None]
  - DEPRESSION [None]
  - ANXIETY [None]
  - IRRITABILITY [None]
  - DRUG EFFECT DECREASED [None]
  - FEELING ABNORMAL [None]
